FAERS Safety Report 9087308 (Version 1)
Quarter: 2013Q1

REPORT INFORMATION
  Report Type: Spontaneous
  Country: GR (occurrence: GR)
  Receive Date: 20130201
  Receipt Date: 20130201
  Transmission Date: 20140127
  Serious: Yes (Other)
  Sender: FDA-Public Use
  Company Number: GR-JNJFOC-20130112014

PATIENT
  Sex: 0

DRUGS (1)
  1. INFLIXIMAB, RECOMBINANT [Suspect]
     Indication: PSORIASIS
     Dosage: AT WEEKS 0, 2 AND 6 (INDUCTION TREATMENT), FOLLOWED BY TREATMENT ONCE EVERY 8 WEEKS
     Route: 042

REACTIONS (3)
  - Dyspnoea [Unknown]
  - Laryngeal dysplasia [Unknown]
  - Therapeutic response decreased [Unknown]
